FAERS Safety Report 4761441-6 (Version None)
Quarter: 2005Q3

REPORT INFORMATION
  Report Type: 
  Country: None (occurrence: None)
  Receive Date: 20050830
  Receipt Date: 20050801
  Transmission Date: 20060218
  Serious: Yes (Other)
  Sender: FDA-Public Use
  Company Number: US_0504114901

PATIENT
  Age: 17 Year
  Sex: Female
  Weight: 59 kg

DRUGS (10)
  1. ZYPREXA [Suspect]
     Dosage: 2.5 MG DAY
     Dates: start: 20030101, end: 20050101
  2. SYMBYAX [Suspect]
     Dates: start: 20030101, end: 20040701
  3. ARIPIPRAZOLE [Concomitant]
  4. RISPERIDONE [Concomitant]
  5. LITHIUM CARBONATE [Concomitant]
  6. BUPROPION [Concomitant]
  7. CITALOPRAM HYDROBROMIDE [Concomitant]
  8. PAROXETINE [Concomitant]
  9. SERTRALIN (SERTRALINE) [Concomitant]
  10. METFORMIN [Concomitant]

REACTIONS (5)
  - BLOOD CHOLESTEROL ABNORMAL [None]
  - BLOOD TRIGLYCERIDES INCREASED [None]
  - HYPERGLYCAEMIA [None]
  - HYPERTENSION [None]
  - PANCREATITIS [None]
